FAERS Safety Report 11606380 (Version 1)
Quarter: 2015Q4

REPORT INFORMATION
  Report Type: Spontaneous
  Country: US (occurrence: US)
  Receive Date: 20151007
  Receipt Date: 20151007
  Transmission Date: 20160304
  Serious: No
  Sender: FDA-Public Use
  Company Number: US-GLAXOSMITHKLINE-US2015GSK080798

PATIENT
  Age: 12 Year
  Sex: Female

DRUGS (2)
  1. FLUTICASONE PROPIONATE INHALATIONAL POWDER [Suspect]
     Active Substance: FLUTICASONE PROPIONATE
     Indication: SWELLING
  2. FLUTICASONE PROPIONATE INHALATIONAL POWDER [Suspect]
     Active Substance: FLUTICASONE PROPIONATE
     Indication: PAIN

REACTIONS (1)
  - Drug ineffective [Unknown]
